FAERS Safety Report 11551656 (Version 2)
Quarter: 2015Q3

REPORT INFORMATION
  Report Type: Spontaneous
  Country: US (occurrence: US)
  Receive Date: 20150903
  Receipt Date: 20150916
  Transmission Date: 20151125
  Serious: No
  Sender: FDA-Public Use
  Company Number: US-ELI_LILLY_AND_COMPANY-US201206008410

PATIENT
  Age: 64 Year
  Sex: Male

DRUGS (3)
  1. LEVEMIR [Concomitant]
     Active Substance: INSULIN DETEMIR
  2. HUMALOG [Suspect]
     Active Substance: INSULIN LISPRO
     Indication: DIABETES MELLITUS
     Dosage: UNK, PRN
  3. LANTUS [Concomitant]
     Active Substance: INSULIN GLARGINE

REACTIONS (7)
  - Blood glucose abnormal [Unknown]
  - Asthenia [Unknown]
  - Blood glucose decreased [Unknown]
  - Unevaluable event [Unknown]
  - Osteoporosis [Unknown]
  - Limb discomfort [Unknown]
  - Visual acuity reduced [Unknown]

NARRATIVE: CASE EVENT DATE: 20120625
